FAERS Safety Report 9055559 (Version 1)
Quarter: 2013Q1

REPORT INFORMATION
  Report Type: Spontaneous
  Country: US (occurrence: US)
  Receive Date: 20130206
  Receipt Date: 20130206
  Transmission Date: 20140127
  Serious: Yes (Other)
  Sender: FDA-Public Use
  Company Number: US-ABBOTT-13P-163-1046106-00

PATIENT
  Sex: Male
  Weight: 97.61 kg

DRUGS (12)
  1. ANDROGEL [Suspect]
     Indication: BLOOD TESTOSTERONE DECREASED
     Dosage: 2 PUMPS DAILY
     Route: 061
     Dates: start: 2012, end: 201207
  2. ANDROGEL [Suspect]
     Indication: PITUITARY HAEMORRHAGE
     Dosage: 2 PUMPS DAILY
     Route: 061
     Dates: start: 2012
  3. ANDROGEL [Suspect]
     Indication: BLOOD TESTOSTERONE DECREASED
     Dosage: UNKNOWN DOSES; USED PUMP AND PACKETS
     Dates: start: 201001, end: 2012
  4. ANDROGEL [Suspect]
     Indication: PITUITARY HAEMORRHAGE
  5. METFORMIN [Concomitant]
     Indication: DIABETES MELLITUS
  6. JANUVIA [Concomitant]
     Indication: DIABETES MELLITUS
  7. SIMVASTATIN [Concomitant]
     Indication: BLOOD CHOLESTEROL INCREASED
  8. LOSARTAN [Concomitant]
     Indication: HYPERTENSION
  9. PROTONIX [Concomitant]
     Indication: GASTROOESOPHAGEAL REFLUX DISEASE
  10. ALPRAZOLAM [Concomitant]
     Indication: ANXIETY
  11. SOMA [Concomitant]
     Indication: MUSCLE SPASMS
  12. NORCO [Concomitant]
     Indication: PAIN

REACTIONS (10)
  - Rotator cuff syndrome [Recovering/Resolving]
  - Muscle injury [Recovering/Resolving]
  - Pain [Recovering/Resolving]
  - Musculoskeletal pain [Recovering/Resolving]
  - Drug ineffective [Not Recovered/Not Resolved]
  - Hair growth abnormal [Not Recovered/Not Resolved]
  - Therapeutic response unexpected [Not Recovered/Not Resolved]
  - Drug administered at inappropriate site [Not Recovered/Not Resolved]
  - Weight increased [Not Recovered/Not Resolved]
  - Glycosylated haemoglobin increased [Recovered/Resolved]
